FAERS Safety Report 24455329 (Version 2)
Quarter: 2024Q4

REPORT INFORMATION
  Report Type: Report from Study
  Country: US (occurrence: US)
  Receive Date: 20241017
  Receipt Date: 20241018
  Transmission Date: 20250115
  Serious: No
  Sender: ROCHE
  Company Number: US-ROCHE-3483322

PATIENT
  Age: 68 Year
  Sex: Female

DRUGS (7)
  1. RITUXAN [Suspect]
     Active Substance: RITUXIMAB
     Indication: Diffuse large B-cell lymphoma
     Route: 065
  2. ACYCLOVIR [Concomitant]
     Active Substance: ACYCLOVIR
  3. AMLODIPINE [Concomitant]
     Active Substance: AMLODIPINE BESYLATE
  4. PREDNISONE [Concomitant]
     Active Substance: PREDNISONE
  5. IMBRUVICA [Concomitant]
     Active Substance: IBRUTINIB
  6. NEULASTA [Concomitant]
     Active Substance: PEGFILGRASTIM
  7. PROCHLORPERAZINE MALEATE [Concomitant]
     Active Substance: PROCHLORPERAZINE MALEATE

REACTIONS (3)
  - Neutropenia [Recovered/Resolved]
  - Pneumonia [Unknown]
  - Rash [Recovered/Resolved]
